FAERS Safety Report 20801313 (Version 3)
Quarter: 2023Q1

REPORT INFORMATION
  Report Type: Spontaneous
  Country: DE (occurrence: DE)
  Receive Date: 20220509
  Receipt Date: 20230320
  Transmission Date: 20230417
  Serious: Yes (Other)
  Sender: FDA-Public Use
  Company Number: DE-STRIDES ARCOLAB LIMITED-2022SP005097

PATIENT
  Sex: Female
  Weight: 3.175 kg

DRUGS (4)
  1. NEVIRAPINE [Suspect]
     Active Substance: NEVIRAPINE
     Indication: Product used for unknown indication
     Dosage: UNK, THE PATIENT^S MOTHER RECEIVED 400MG FOR HIV INFECTION, DURING PREGNANCY
     Route: 064
  2. NEVIRAPINE [Suspect]
     Active Substance: NEVIRAPINE
     Dosage: UNK, THE PATIENT^S MOTHER RECEIVED 445MG FOR HIV INFECTION, DURING PREGNANCY
     Route: 064
  3. EMTRICITABINE\TENOFOVIR DISOPROXIL [Suspect]
     Active Substance: EMTRICITABINE\TENOFOVIR DISOPROXIL
     Indication: Product used for unknown indication
     Dosage: UNK, THE PATIENT^S MOTHER RECEIVED 445MG FOR HIV INFECTION, DURING PREGNANCY
     Route: 064
  4. EMTRICITABINE\TENOFOVIR DISOPROXIL [Suspect]
     Active Substance: EMTRICITABINE\TENOFOVIR DISOPROXIL
     Dosage: UNK, THE PATIENT^S MOTHER RECEIVED 440MG FOR HIV INFECTION, DURING PREGNANCY
     Route: 064

REACTIONS (2)
  - Ventricular septal defect [Unknown]
  - Foetal exposure during pregnancy [Unknown]
